FAERS Safety Report 18230601 (Version 1)
Quarter: 2020Q3

REPORT INFORMATION
  Report Type: Spontaneous
  Country: FR (occurrence: FR)
  Receive Date: 20200904
  Receipt Date: 20200904
  Transmission Date: 20201103
  Serious: Yes (Hospitalization)
  Sender: FDA-Public Use
  Company Number: FR-TEVA-2020-FR-1821870

PATIENT
  Age: 15 Year
  Sex: Female
  Weight: 48 kg

DRUGS (4)
  1. GARDASIL [Suspect]
     Active Substance: HUMAN PAPILLOMAVIRUS QUADRIVALENT (TYPES 6, 11, 16, AND 18) VACCINE, RECOMBINANT
     Indication: IMMUNISATION
     Dosage: REMINDER
     Route: 030
     Dates: start: 20200221, end: 20200221
  2. REMICADE [Suspect]
     Active Substance: INFLIXIMAB
     Indication: CROHN^S DISEASE
     Dosage: 10 MG / KG X1 / 8 WEEKS
     Route: 042
     Dates: start: 20180511
  3. DOXYCYCLINE. [Suspect]
     Active Substance: DOXYCYCLINE
     Indication: ACNE
     Dates: start: 20191101, end: 20191215
  4. IMUREL [Suspect]
     Active Substance: AZATHIOPRINE SODIUM
     Indication: CROHN^S DISEASE
     Dosage: 50 MG
     Route: 048
     Dates: start: 20180511

REACTIONS (1)
  - Acne conglobata [Recovering/Resolving]

NARRATIVE: CASE EVENT DATE: 202003
